FAERS Safety Report 5531535-6 (Version None)
Quarter: 2007Q4

REPORT INFORMATION
  Report Type: 
  Country: None (occurrence: None)
  Receive Date: 20071128
  Receipt Date: 20071128
  Transmission Date: 20080405
  Serious: Yes (Other)
  Sender: FDA-Public Use
  Company Number: None

PATIENT
  Age: 30 Year
  Sex: Female
  Weight: 104.3273 kg

DRUGS (1)
  1. PROVENTIL-HFA [Suspect]
     Indication: DYSPNOEA
     Dosage: 2 PUFFS 2 HOURS PO
     Route: 048
     Dates: start: 20071120, end: 20071120

REACTIONS (4)
  - DRUG HYPERSENSITIVITY [None]
  - PRURITUS GENERALISED [None]
  - RASH [None]
  - URTICARIA [None]
